FAERS Safety Report 13551662 (Version 1)
Quarter: 2017Q2

REPORT INFORMATION
  Report Type: Report from Study
  Country: US (occurrence: US)
  Receive Date: 20170516
  Receipt Date: 20170516
  Transmission Date: 20170830
  Serious: Yes (Hospitalization)
  Sender: FDA-Public Use
  Company Number: US-ACTELION-A-US2017-153795

PATIENT
  Age: 56 Year
  Sex: Female

DRUGS (10)
  1. CITRACAL + D [Concomitant]
     Active Substance: CALCIUM CITRATE\VITAMIN D
     Dosage: UNK
     Dates: start: 20160510
  2. VITAMIN D [Concomitant]
     Active Substance: CHOLECALCIFEROL
     Dosage: 5000 U, UNK
     Dates: start: 20170403
  3. OPSUMIT [Suspect]
     Active Substance: MACITENTAN
     Indication: PULMONARY ARTERIAL HYPERTENSION
     Dosage: 10 MG, QD
     Route: 048
     Dates: start: 20150729
  4. SIMVASTATIN. [Concomitant]
     Active Substance: SIMVASTATIN
     Dosage: 40 MG, UNK
     Dates: start: 20160510
  5. POTASSIUM CHLORIDE. [Concomitant]
     Active Substance: POTASSIUM CHLORIDE
     Dosage: 20 MEQ, UNK
     Dates: start: 20150925
  6. ERYTHROMYCIN. [Concomitant]
     Active Substance: ERYTHROMYCIN
     Dosage: UNK
     Dates: start: 20170502
  7. TORSEMIDE. [Concomitant]
     Active Substance: TORSEMIDE
     Dosage: 20 MG, UNK
     Dates: start: 20170502
  8. PREDNISONE. [Concomitant]
     Active Substance: PREDNISONE
     Dosage: 10 MG, UNK
     Route: 048
     Dates: start: 20161109
  9. PEPCID [Concomitant]
     Active Substance: FAMOTIDINE
     Dosage: 20 MG, UNK
     Dates: start: 20161109
  10. AMOXICILLIN + CLAV. POTASSIUM [Concomitant]
     Active Substance: AMOXICILLIN\CLAVULANATE POTASSIUM
     Dosage: UNK
     Dates: start: 20170426

REACTIONS (1)
  - Cellulitis [Recovering/Resolving]

NARRATIVE: CASE EVENT DATE: 20170504
